FAERS Safety Report 11228786 (Version 2)
Quarter: 2015Q2

REPORT INFORMATION
  Report Type: Spontaneous
  Country: DE (occurrence: DE)
  Receive Date: 20150630
  Receipt Date: 20150630
  Transmission Date: 20150821
  Serious: Yes (Death, Life-Threatening, Other)
  Sender: FDA-Public Use
  Company Number: DE-FRESENIUS KABI-FK201503012

PATIENT
  Age: 68 Year
  Sex: Female

DRUGS (15)
  1. DEXAMETHASONE INJECTION (MANUFACTURER UNKNOWN) [Suspect]
     Active Substance: DEXAMETHASONE
     Indication: PLASMA CELL MYELOMA
     Route: 065
  2. DOXORUBICIN (MANUFACTURER UNKNOWN) [Suspect]
     Active Substance: DOXORUBICIN
     Indication: PLASMA CELL MYELOMA
     Route: 065
  3. DOXORUBICIN (MANUFACTURER UNKNOWN) [Suspect]
     Active Substance: DOXORUBICIN
  4. ENTECAVIR. [Concomitant]
     Active Substance: ENTECAVIR
     Indication: HEPATITIS B
     Route: 065
  5. BENDAMUSTINE [Concomitant]
     Active Substance: BENDAMUSTINE
     Indication: PLASMA CELL MYELOMA
     Route: 065
  6. POMALIDOMIDE [Suspect]
     Active Substance: POMALIDOMIDE
     Indication: PLASMA CELL MYELOMA
  7. POMALIDOMIDE [Suspect]
     Active Substance: POMALIDOMIDE
  8. BORTEZOMIIB [Concomitant]
  9. POMALIDOMIDE [Suspect]
     Active Substance: POMALIDOMIDE
  10. DEXAMETHASONE INJECTION (MANUFACTURER UNKNOWN) [Suspect]
     Active Substance: DEXAMETHASONE
  11. POMALIDOMIDE [Suspect]
     Active Substance: POMALIDOMIDE
  12. CYCLOPHOSPHAMIDE. [Concomitant]
     Active Substance: CYCLOPHOSPHAMIDE
     Indication: PLASMA CELL MYELOMA
     Route: 065
  13. POMALIDOMIDE [Suspect]
     Active Substance: POMALIDOMIDE
  14. BORTEZOMIIB [Concomitant]
     Indication: PLASMA CELL MYELOMA
     Route: 065
  15. DEXAMETHASONE INJECTION (MANUFACTURER UNKNOWN) [Suspect]
     Active Substance: DEXAMETHASONE
     Route: 065

REACTIONS (7)
  - Peripheral sensory neuropathy [Recovering/Resolving]
  - Anaemia [Unknown]
  - Disease progression [Not Recovered/Not Resolved]
  - Sepsis [Fatal]
  - Neutropenia [Unknown]
  - Thrombocytopenia [Recovered/Resolved]
  - Hepatitis B [Unknown]
